FAERS Safety Report 10512549 (Version 1)
Quarter: 2014Q4

REPORT INFORMATION
  Report Type: Report from Study
  Country: MX (occurrence: MX)
  Receive Date: 20141011
  Receipt Date: 20141011
  Transmission Date: 20150528
  Serious: Yes (Disabling, Other)
  Sender: FDA-Public Use
  Company Number: PHHY2014MX132444

PATIENT
  Age: 73 Year
  Sex: Female
  Weight: 69 kg

DRUGS (3)
  1. CO-DIOVAN [Suspect]
     Active Substance: HYDROCHLOROTHIAZIDE\VALSARTAN
     Indication: HYPERTENSION
     Dosage: 1 DF (80/12.5MG) DAILY
     Route: 048
     Dates: end: 201408
  2. CO-DIOVAN [Suspect]
     Active Substance: HYDROCHLOROTHIAZIDE\VALSARTAN
     Dosage: 1 DF (160/12.5MG), DAILY
     Route: 048
     Dates: start: 201408
  3. ASPIRIN PROTEC [Concomitant]
     Indication: CARDIAC DISORDER
     Dosage: 1 UKN, DAILY
     Dates: start: 201408

REACTIONS (10)
  - Colitis [Not Recovered/Not Resolved]
  - Overweight [Not Recovered/Not Resolved]
  - General physical health deterioration [Not Recovered/Not Resolved]
  - Blood pressure increased [Not Recovered/Not Resolved]
  - Fatigue [Not Recovered/Not Resolved]
  - Gastrooesophageal reflux disease [Not Recovered/Not Resolved]
  - Gastric disorder [Not Recovered/Not Resolved]
  - Cardiomegaly [Not Recovered/Not Resolved]
  - Movement disorder [Not Recovered/Not Resolved]
  - Gastritis [Not Recovered/Not Resolved]

NARRATIVE: CASE EVENT DATE: 201408
